FAERS Safety Report 6558241-3 (Version None)
Quarter: 2010Q1

REPORT INFORMATION
  Report Type: 
  Country: None (occurrence: None)
  Receive Date: 20100129
  Receipt Date: 20100126
  Transmission Date: 20100710
  Serious: Yes (Other)
  Sender: FDA-Public Use
  Company Number: US-BRISTOL-MYERS SQUIBB COMPANY-14949861

PATIENT
  Age: 16 Year

DRUGS (8)
  1. ABATACEPT [Suspect]
     Indication: VASCULITIS
  2. HUMIRA [Suspect]
     Dosage: STRENGTH : 40MG/0.8ML PREFILLED SYRINGE
  3. METHOTREXATE [Concomitant]
  4. RITUXIMAB [Concomitant]
  5. ETANERCEPT [Concomitant]
  6. INFLIXIMAB [Concomitant]
  7. AZATHIOPRINE [Concomitant]
  8. CYCLOPHOSPHAMIDE [Concomitant]

REACTIONS (2)
  - LYMPHOMA [None]
  - LYMPHOMATOID PAPULOSIS [None]
